FAERS Safety Report 22168452 (Version 1)
Quarter: 2023Q2

REPORT INFORMATION
  Report Type: Spontaneous
  Country: MX (occurrence: None)
  Receive Date: 20230403
  Receipt Date: 20230403
  Transmission Date: 20230722
  Serious: Yes (Other)
  Sender: FDA-Public Use
  Company Number: MX-ROCHE-3321094

PATIENT
  Sex: Male
  Weight: 65 kg

DRUGS (1)
  1. OCRELIZUMAB [Suspect]
     Active Substance: OCRELIZUMAB
     Indication: Multiple sclerosis
     Dosage: DOSAGE AND FREQUENCY WERE NOT REPORTED
     Route: 065
     Dates: start: 201810

REACTIONS (5)
  - Demyelination [Unknown]
  - Spinal cord injury cervical [Unknown]
  - Optic neuritis [Unknown]
  - Colour blindness [Unknown]
  - Colour blindness [Unknown]
